FAERS Safety Report 24183109 (Version 3)
Quarter: 2024Q4

REPORT INFORMATION
  Report Type: Spontaneous
  Country: CA (occurrence: None)
  Receive Date: 20240807
  Receipt Date: 20241024
  Transmission Date: 20250115
  Serious: Yes (Other)
  Sender: ORION
  Company Number: CA-PFIZER INC-202400229242

PATIENT
  Age: 48 Year
  Sex: Female
  Weight: 90.7 kg

DRUGS (4)
  1. METHOTREXATE [Suspect]
     Active Substance: METHOTREXATE
     Indication: Product used for unknown indication
     Dates: start: 2009
  2. PREDNISONE [Concomitant]
     Active Substance: PREDNISONE
     Dosage: ON/OFF THROUGHOUT YEARS
     Dates: start: 2019
  3. HYDROXYCHLOROQUINE [Concomitant]
     Active Substance: HYDROXYCHLOROQUINE
     Dates: start: 2009, end: 2012
  4. ORENCIA [Concomitant]
     Active Substance: ABATACEPT
     Dates: start: 2020, end: 2021

REACTIONS (4)
  - Cerebrovascular accident [Unknown]
  - Shoulder operation [Unknown]
  - Pulmonary mass [Recovered/Resolved]
  - Pneumonia bacterial [Recovered/Resolved]

NARRATIVE: CASE EVENT DATE: 20170101
